FAERS Safety Report 8593736-2 (Version None)
Quarter: 2012Q3

REPORT INFORMATION
  Report Type: 
  Country: None (occurrence: None)
  Receive Date: 20120814
  Receipt Date: 20120801
  Transmission Date: 20120928
  Serious: No
  Sender: FDA-Public Use
  Company Number: US-ASTRAZENECA-2012SE54904

PATIENT
  Sex: Male

DRUGS (16)
  1. LISINOPRIL [Suspect]
     Dosage: 20 MG, 2 TABLET ONCE A DAY
     Route: 048
  2. AMPHETAMINE AND DEXTROAMPHETAMINE SALTS [Concomitant]
     Indication: ATTENTION DEFICIT/HYPERACTIVITY DISORDER
     Route: 048
  3. METFORMIN HCL [Concomitant]
     Indication: TYPE 2 DIABETES MELLITUS
     Route: 048
  4. LAMOTRIGINE [Concomitant]
     Indication: DEPRESSION
     Dosage: 100 MG 1TABLET, 2.5 TABLET QHS
     Route: 048
  5. CITALOPRAM [Concomitant]
     Indication: DEPRESSION
     Route: 048
  6. CRESTOR [Suspect]
     Indication: HYPERLIPIDAEMIA
     Dosage: 10 MG, 1.5 TABLET ONCE A DAY AT BEDTIME
     Route: 048
  7. FLAX SEED OIL [Concomitant]
     Route: 048
  8. LISINOPRIL [Suspect]
     Indication: ESSENTIAL HYPERTENSION
     Route: 048
  9. OMEPRAZOLE [Suspect]
     Route: 048
  10. FISH OIL [Concomitant]
     Indication: HYPERLIPIDAEMIA
     Route: 048
  11. ASPIRIN [Concomitant]
     Indication: ESSENTIAL HYPERTENSION
     Route: 048
  12. HYDROCHLOROTHIAZIDE [Concomitant]
     Indication: ESSENTIAL HYPERTENSION
     Route: 048
  13. GLYBURIDE [Concomitant]
     Indication: TYPE 2 DIABETES MELLITUS
     Dosage: 5 MG, 1 TABLET IN THE AM AND HALF TABLET IN THE PM
     Route: 048
  14. GARLIC [Concomitant]
     Indication: HYPERLIPIDAEMIA
     Dosage: 3 TIMES A WEEK AS DIRECTED
  15. MULTI-VITAMINS [Concomitant]
     Indication: ESSENTIAL HYPERTENSION
     Dosage: 1 CAPSULE, ONCE A DAY
     Route: 048
  16. VITAMIN E [Concomitant]
     Dosage: 400 INTL UNITS 1 CAPSULE, ONCE A DAY
     Route: 048

REACTIONS (6)
  - ATTENTION DEFICIT/HYPERACTIVITY DISORDER [None]
  - POLYARTHRITIS [None]
  - TYPE 2 DIABETES MELLITUS [None]
  - HYPERLIPIDAEMIA [None]
  - ESSENTIAL HYPERTENSION [None]
  - DEPRESSION [None]
